FAERS Safety Report 24529887 (Version 2)
Quarter: 2024Q4

REPORT INFORMATION
  Report Type: Spontaneous
  Country: DE (occurrence: DE)
  Receive Date: 20241021
  Receipt Date: 20241029
  Transmission Date: 20250114
  Serious: Yes (Other)
  Sender: INCYTE
  Company Number: DE-002147023-NVSC2024DE203450

PATIENT

DRUGS (2)
  1. RUXOLITINIB [Suspect]
     Active Substance: RUXOLITINIB
     Indication: Product used for unknown indication
     Dosage: 5 MG (2X TABLETS IN THE MORNING)
     Route: 065
     Dates: start: 2023, end: 202410
  2. RUXOLITINIB [Suspect]
     Active Substance: RUXOLITINIB
     Dosage: 15 MG (5 MG IN THE MORNING AND 10 MG IN THE EVENING)
     Route: 065
     Dates: start: 202410

REACTIONS (7)
  - Constipation [Unknown]
  - Myalgia [Not Recovered/Not Resolved]
  - Cervix carcinoma [Unknown]
  - Paraesthesia [Not Recovered/Not Resolved]
  - Platelet count increased [Unknown]
  - Incorrect dose administered [Unknown]
  - Drug intolerance [Unknown]

NARRATIVE: CASE EVENT DATE: 20241001
